FAERS Safety Report 20171900 (Version 1)
Quarter: 2021Q4

REPORT INFORMATION
  Report Type: Spontaneous
  Country: US (occurrence: US)
  Receive Date: 20211210
  Receipt Date: 20211210
  Transmission Date: 20220303
  Serious: No
  Sender: FDA-Public Use
  Company Number: US-GILEAD-2021-0556288

PATIENT

DRUGS (2)
  1. TRUVADA [Suspect]
     Active Substance: EMTRICITABINE\TENOFOVIR DISOPROXIL FUMARATE
     Indication: Product used for unknown indication
     Route: 065
  2. REYATAZ [Concomitant]
     Active Substance: ATAZANAVIR SULFATE

REACTIONS (1)
  - Glomerular filtration rate decreased [Unknown]

NARRATIVE: CASE EVENT DATE: 20151101
